FAERS Safety Report 20942988 (Version 1)
Quarter: 2022Q2

REPORT INFORMATION
  Report Type: Spontaneous
  Country: CA (occurrence: CA)
  Receive Date: 20220610
  Receipt Date: 20220610
  Transmission Date: 20220721
  Serious: Yes (Other)
  Sender: FDA-Public Use
  Company Number: CA-TEVA-2022-CA-2043064

PATIENT
  Age: 7 Year

DRUGS (7)
  1. LAMOTRIGINE [Interacting]
     Active Substance: LAMOTRIGINE
     Indication: Status epilepticus
     Route: 065
  2. LAMOTRIGINE [Interacting]
     Active Substance: LAMOTRIGINE
     Route: 065
  3. LEVETIRACETAM [Suspect]
     Active Substance: LEVETIRACETAM
     Indication: Status epilepticus
     Route: 065
  4. MIDAZOLAM [Suspect]
     Active Substance: MIDAZOLAM
     Indication: Status epilepticus
     Route: 065
  5. PHENOBARBITAL SODIUM [Suspect]
     Active Substance: PHENOBARBITAL SODIUM
     Indication: Status epilepticus
     Route: 065
  6. VALPROATE SODIUM [Suspect]
     Active Substance: VALPROATE SODIUM
     Indication: Status epilepticus
     Route: 065
  7. VALPROATE SODIUM [Suspect]
     Active Substance: VALPROATE SODIUM
     Route: 065

REACTIONS (3)
  - Anticonvulsant drug level therapeutic [Unknown]
  - Treatment failure [Unknown]
  - Drug interaction [Unknown]
